FAERS Safety Report 20850535 (Version 1)
Quarter: 2022Q2

REPORT INFORMATION
  Report Type: Spontaneous
  Country: US (occurrence: US)
  Receive Date: 20220519
  Receipt Date: 20220519
  Transmission Date: 20220721
  Serious: No
  Sender: FDA-Public Use
  Company Number: US-PFIZER INC-202101815657

PATIENT
  Age: 82 Year
  Sex: Male

DRUGS (2)
  1. TAFAMIDIS [Suspect]
     Active Substance: TAFAMIDIS
     Indication: Amyloidosis senile
     Dosage: 61 MG
  2. TAFAMIDIS [Suspect]
     Active Substance: TAFAMIDIS
     Indication: Cardiac failure

REACTIONS (1)
  - Cough [Unknown]
